FAERS Safety Report 4606002-4 (Version None)
Quarter: 2005Q1

REPORT INFORMATION
  Report Type: 
  Country: None (occurrence: None)
  Receive Date: 20050311
  Receipt Date: 20050303
  Transmission Date: 20050727
  Serious: Yes (Hospitalization)
  Sender: FDA-Public Use
  Company Number: US-GLAXOSMITHKLINE-A0548332A

PATIENT
  Sex: Male
  Weight: 135.5 kg

DRUGS (10)
  1. ECOTRIN REGULAR STRENGTH TABLETS [Suspect]
     Route: 048
     Dates: start: 19820101
  2. COLESTID [Concomitant]
     Dosage: 1G TWICE PER DAY
     Route: 048
  3. VITAMIN E [Concomitant]
     Dosage: 400IU THREE TIMES PER DAY
     Route: 048
  4. INDAPAMIDE [Concomitant]
     Dosage: 2.5MG PER DAY
     Route: 048
  5. ALTACE [Concomitant]
     Dosage: 10MG PER DAY
     Route: 048
  6. ATENOLOL [Concomitant]
     Dosage: 100MG PER DAY
     Route: 048
  7. LIPITOR [Concomitant]
     Dosage: 80MG PER DAY
     Route: 048
  8. NORVASC [Concomitant]
     Dosage: 10MG PER DAY
     Route: 048
  9. GLIPIZIDE [Concomitant]
     Dosage: 5MG PER DAY
     Route: 048
  10. FUROSEMIDE [Concomitant]
     Dosage: 40MG AS REQUIRED

REACTIONS (1)
  - DYSPNOEA [None]
